FAERS Safety Report 9175714 (Version 1)
Quarter: 2013Q1

REPORT INFORMATION
  Report Type: Spontaneous
  Country: SK (occurrence: SK)
  Receive Date: 20130320
  Receipt Date: 20130320
  Transmission Date: 20140127
  Serious: Yes (Other)
  Sender: FDA-Public Use
  Company Number: SK-ROCHE-1203205

PATIENT
  Age: 66 Year
  Sex: Male

DRUGS (9)
  1. RITUXIMAB [Suspect]
     Indication: CHRONIC LYMPHOCYTIC LEUKAEMIA
     Route: 065
     Dates: start: 20090223
  2. RITUXIMAB [Suspect]
     Route: 065
     Dates: start: 20090528
  3. RITUXIMAB [Suspect]
     Route: 065
     Dates: start: 20090321
  4. FLUDARABINE [Concomitant]
     Route: 065
     Dates: start: 20090223
  5. FLUDARABINE [Concomitant]
     Route: 065
     Dates: start: 20090528
  6. FLUDARABINE [Concomitant]
     Route: 065
     Dates: start: 20090321
  7. CYCLOPHOSPHAMIDE [Concomitant]
     Route: 065
     Dates: start: 20090223
  8. CYCLOPHOSPHAMIDE [Concomitant]
     Route: 065
     Dates: start: 20090528
  9. CYCLOPHOSPHAMIDE [Concomitant]
     Route: 065
     Dates: start: 20090321

REACTIONS (4)
  - Pyrexia [Not Recovered/Not Resolved]
  - Productive cough [Recovering/Resolving]
  - Nephropathy toxic [Unknown]
  - Febrile neutropenia [Unknown]
